FAERS Safety Report 6903059-2 (Version None)
Quarter: 2010Q3

REPORT INFORMATION
  Report Type: 
  Country: None (occurrence: None)
  Receive Date: 20100803
  Receipt Date: 20080910
  Transmission Date: 20110219
  Serious: No
  Sender: FDA-Public Use
  Company Number: US-PFIZER INC-2008064979

PATIENT
  Sex: Male
  Weight: 62.14 kg

DRUGS (2)
  1. LYRICA [Suspect]
     Indication: NEURALGIA
     Route: 048
     Dates: start: 20080701
  2. DARVOCET [Concomitant]

REACTIONS (7)
  - CONFUSIONAL STATE [None]
  - DIPLOPIA [None]
  - HYPOAESTHESIA [None]
  - PAIN [None]
  - PARAESTHESIA [None]
  - VISION BLURRED [None]
  - WHEEZING [None]
